FAERS Safety Report 19180347 (Version 1)
Quarter: 2021Q2

REPORT INFORMATION
  Report Type: Spontaneous
  Country: US (occurrence: US)
  Receive Date: 20210424
  Receipt Date: 20210424
  Transmission Date: 20210717
  Serious: Yes (Other)
  Sender: FDA-Public Use
  Company Number: None

PATIENT
  Age: 66 Year
  Sex: Male
  Weight: 101.25 kg

DRUGS (3)
  1. NIFEDIPINE. [Suspect]
     Active Substance: NIFEDIPINE
     Indication: HYPERTENSION
     Dosage: ?          QUANTITY:90 TABLET(S);?
     Route: 048
     Dates: start: 20210413, end: 20210414
  2. BABY ASPIRIN [Concomitant]
     Active Substance: ASPIRIN
  3. CPAP [Concomitant]
     Active Substance: DEVICE

REACTIONS (4)
  - Muscle spasms [None]
  - Dyspnoea [None]
  - Feeling abnormal [None]
  - Discomfort [None]

NARRATIVE: CASE EVENT DATE: 20210414
